FAERS Safety Report 19958186 (Version 1)
Quarter: 2021Q4

REPORT INFORMATION
  Report Type: Report from Study
  Country: NL (occurrence: NL)
  Receive Date: 20211015
  Receipt Date: 20211015
  Transmission Date: 20220304
  Serious: Yes (Death)
  Sender: FDA-Public Use
  Company Number: NL-NOVARTISPH-NVSC2021NL234714

PATIENT
  Sex: Female

DRUGS (1)
  1. GILENYA [Suspect]
     Active Substance: FINGOLIMOD HYDROCHLORIDE
     Indication: Multiple sclerosis
     Dosage: 1 DF, QD
     Route: 048

REACTIONS (1)
  - Death [Fatal]
